FAERS Safety Report 17468273 (Version 1)
Quarter: 2020Q1

REPORT INFORMATION
  Report Type: Spontaneous
  Country: US (occurrence: US)
  Receive Date: 20200215
  Receipt Date: 20200215
  Transmission Date: 20200409
  Serious: No
  Sender: FDA-Public Use
  Company Number: None

PATIENT
  Sex: Female

DRUGS (3)
  1. URSODIOL. [Concomitant]
     Active Substance: URSODIOL
  2. OCALIVA [Suspect]
     Active Substance: OBETICHOLIC ACID
     Indication: PRIMARY BILIARY CHOLANGITIS
     Route: 048
     Dates: start: 20170128
  3. VALSOYCLOVIR [Concomitant]
     Indication: PRIMARY BILIARY CHOLANGITIS
     Route: 048
     Dates: start: 20170123

REACTIONS (2)
  - Abdominal pain [None]
  - Therapy cessation [None]
